FAERS Safety Report 5170771-8 (Version None)
Quarter: 2006Q4

REPORT INFORMATION
  Report Type: 
  Country: None (occurrence: None)
  Receive Date: 20060919
  Receipt Date: 20060614
  Transmission Date: 20070319
  Serious: No
  Sender: FDA-Public Use
  Company Number: BDI-008329

PATIENT
  Age: 52 Year
  Sex: Male
  Weight: 81.82 kg

DRUGS (2)
  1. MULTIHANCE [Suspect]
     Indication: NUCLEAR MAGNETIC RESONANCE IMAGING
     Dosage: 18 ML ONCE IV
     Route: 042
     Dates: start: 20060608, end: 20060608
  2. MULTIHANCE [Suspect]
     Indication: NUCLEAR MAGNETIC RESONANCE IMAGING BRAIN
     Dosage: 18 ML ONCE IV
     Route: 042
     Dates: start: 20060608, end: 20060608

REACTIONS (2)
  - DIZZINESS [None]
  - SALIVARY HYPERSECRETION [None]
